FAERS Safety Report 7200264-5 (Version None)
Quarter: 2010Q4

REPORT INFORMATION
  Report Type: 
  Country: None (occurrence: None)
  Receive Date: 20101228
  Receipt Date: 20101220
  Transmission Date: 20110411
  Serious: Yes (Hospitalization)
  Sender: FDA-Public Use
  Company Number: A0901468A

PATIENT
  Age: 44 Year
  Sex: Female
  Weight: 65.8 kg

DRUGS (11)
  1. FLOLAN [Suspect]
     Indication: COR PULMONALE CHRONIC
     Dosage: 30.56NGKM UNKNOWN
     Route: 042
     Dates: start: 20080912
  2. FLOLAN [Suspect]
     Indication: COR PULMONALE CHRONIC
     Route: 042
     Dates: start: 20080912
  3. PROZAC [Concomitant]
     Dosage: 20MG TWICE PER DAY
     Route: 048
  4. CLONAZEPAM [Concomitant]
     Dosage: .5MG TWICE PER DAY
     Route: 048
  5. KLOR-CON [Concomitant]
     Dosage: 20MEQ TWICE PER DAY
     Route: 048
  6. PREDNISONE [Concomitant]
     Dosage: 1TAB PER DAY
     Route: 048
  7. WELLBUTRIN [Concomitant]
     Dosage: 200MGD PER DAY
     Route: 048
  8. LASIX [Concomitant]
     Dosage: 40MGD PER DAY
     Route: 048
  9. RYTHMOL [Concomitant]
     Dosage: 150MG THREE TIMES PER DAY
     Route: 048
  10. LISINOPRIL [Concomitant]
     Dosage: 5MG PER DAY
     Route: 048
  11. NEXIUM [Concomitant]
     Dosage: 40MG PER DAY
     Route: 048

REACTIONS (4)
  - CARDIOVERSION [None]
  - DIZZINESS [None]
  - DRUG DOSE OMISSION [None]
  - TREATMENT NONCOMPLIANCE [None]
